FAERS Safety Report 4360365-6 (Version None)
Quarter: 2004Q2

REPORT INFORMATION
  Report Type: 
  Country: None (occurrence: None)
  Receive Date: 20040517
  Receipt Date: 20040508
  Transmission Date: 20050107
  Serious: Yes (Other)
  Sender: FDA-Public Use
  Company Number: CIO04012012

PATIENT
  Age: 54 Year
  Sex: Female

DRUGS (1)
  1. CREST W/ FLUORISTAN [Suspect]
     Dosage: 1 APPLIC, 1 ONLY FOR 1 DAY, INTRAORAL
     Route: 048
     Dates: start: 20040507, end: 20040507

REACTIONS (1)
  - ANAPHYLACTIC REACTION [None]
